FAERS Safety Report 5128954-9 (Version None)
Quarter: 2006Q4

REPORT INFORMATION
  Report Type: 
  Country: None (occurrence: None)
  Receive Date: 20061016
  Receipt Date: 20061016
  Transmission Date: 20070319
  Serious: No
  Sender: FDA-Public Use
  Company Number: None

PATIENT
  Age: 54 Year
  Sex: Male
  Weight: 97.5234 kg

DRUGS (1)
  1. CIALIS [Suspect]
     Indication: ERECTILE DYSFUNCTION
     Dosage: 20MG AS NEEDED OPHTHALMIC
     Route: 047
     Dates: start: 20061010, end: 20061015

REACTIONS (1)
  - PHARMACEUTICAL PRODUCT COUNTERFEIT [None]
